FAERS Safety Report 21390698 (Version 1)
Quarter: 2022Q3

REPORT INFORMATION
  Report Type: Other
  Country: CN (occurrence: CN)
  Receive Date: 20220929
  Receipt Date: 20220929
  Transmission Date: 20221027
  Serious: Yes (Other)
  Sender: FDA-Public Use
  Company Number: CN-GE HEALTHCARE-2022CSU006890

PATIENT
  Age: 34 Year
  Sex: Female
  Weight: 50 kg

DRUGS (5)
  1. OMNIPAQUE [Suspect]
     Active Substance: IOHEXOL
     Indication: Computerised tomogram thorax
     Dosage: 100 ML, SINGLE
     Route: 041
     Dates: start: 20220916, end: 20220916
  2. OMNIPAQUE [Suspect]
     Active Substance: IOHEXOL
     Indication: Chest pain
  3. OMNIPAQUE [Suspect]
     Active Substance: IOHEXOL
     Indication: Arrhythmia
  4. OMNIPAQUE [Suspect]
     Active Substance: IOHEXOL
     Indication: Atrioventricular block second degree
  5. OMNIPAQUE [Suspect]
     Active Substance: IOHEXOL
     Indication: Atrioventricular block first degree

REACTIONS (5)
  - Myalgia [Recovering/Resolving]
  - Dyspnoea [Recovering/Resolving]
  - Vomiting [Recovering/Resolving]
  - Pain [Recovering/Resolving]
  - Asthenia [Recovered/Resolved]

NARRATIVE: CASE EVENT DATE: 20220916
